FAERS Safety Report 14562831 (Version 4)
Quarter: 2019Q4

REPORT INFORMATION
  Report Type: Spontaneous
  Country: US (occurrence: US)
  Receive Date: 20180222
  Receipt Date: 20191031
  Transmission Date: 20200122
  Serious: Yes (Hospitalization, Other)
  Sender: FDA-Public Use
  Company Number: US-PFIZER INC-2018071040

PATIENT
  Sex: Male
  Weight: 84 kg

DRUGS (10)
  1. METAXALONE. [Concomitant]
     Active Substance: METAXALONE
     Indication: PAIN
     Dosage: 800 MG, UNK
     Route: 048
  2. ESOMEPRAZOLE. [Concomitant]
     Active Substance: ESOMEPRAZOLE MAGNESIUM
     Indication: PROPHYLAXIS AGAINST GASTROINTESTINAL ULCER
     Dosage: 40 MG, 1X/DAY
     Route: 048
  3. ZANTAC [Concomitant]
     Active Substance: RANITIDINE HYDROCHLORIDE
     Indication: HAEMORRHAGE
     Dosage: 150 MG, DAILY
     Route: 048
  4. DULOXETINE. [Concomitant]
     Active Substance: DULOXETINE
     Indication: ARTHRALGIA
     Dosage: 60 MG, 1X/DAY
     Route: 048
     Dates: start: 2014
  5. TRAMADOL. [Concomitant]
     Active Substance: TRAMADOL
     Indication: BREAKTHROUGH PAIN
     Dosage: 50 MG, AS NEEDED
  6. CELEBREX [Suspect]
     Active Substance: CELECOXIB
     Indication: OSTEOARTHRITIS
  7. TRAMADOL. [Concomitant]
     Active Substance: TRAMADOL
     Indication: PAIN
  8. TRAMADOL [TRAMADOL HYDROCHLORIDE] [Concomitant]
     Active Substance: TRAMADOL HYDROCHLORIDE
     Indication: PAIN
     Dosage: 100 MG, EVERY 12 HOURS WITH A THIRD TABLET IF NEEDED
  9. CELEBREX [Suspect]
     Active Substance: CELECOXIB
     Indication: ARTHRALGIA
     Dosage: 200 MG, 2X/DAY
     Route: 048
     Dates: start: 1995
  10. ALDACTONE [Concomitant]
     Active Substance: SPIRONOLACTONE
     Indication: FLUID RETENTION
     Dosage: 25 MG, 2X/DAY
     Route: 048
     Dates: start: 1994

REACTIONS (15)
  - Cellulitis [Unknown]
  - Scoliosis [Unknown]
  - Spinal stenosis [Unknown]
  - Drug ineffective [Unknown]
  - Musculoskeletal pain [Unknown]
  - Arthritis [Unknown]
  - Fall [Unknown]
  - Gastrointestinal ulcer haemorrhage [Unknown]
  - Intervertebral disc degeneration [Unknown]
  - Arthropathy [Unknown]
  - Swelling [Unknown]
  - Intervertebral disc protrusion [Unknown]
  - Pain in extremity [Unknown]
  - Body height decreased [Unknown]
  - Arthralgia [Unknown]

NARRATIVE: CASE EVENT DATE: 201711
